FAERS Safety Report 5470668-X (Version None)
Quarter: 2007Q3

REPORT INFORMATION
  Report Type: 
  Country: None (occurrence: None)
  Receive Date: 20070928
  Receipt Date: 20070918
  Transmission Date: 20080115
  Serious: Yes (Hospitalization)
  Sender: FDA-Public Use
  Company Number: US-ELI_LILLY_AND_COMPANY-US200709002045

PATIENT
  Age: 72 Year
  Sex: Female

DRUGS (2)
  1. CHOLESTEROL [Concomitant]
  2. FORTEO [Suspect]
     Indication: OSTEOPOROSIS
     Dosage: UNK, UNKNOWN
     Route: 058
     Dates: start: 20070911

REACTIONS (4)
  - CHEST PAIN [None]
  - DIZZINESS [None]
  - NERVOUSNESS [None]
  - TREMOR [None]
